FAERS Safety Report 24544520 (Version 1)
Quarter: 2024Q4

REPORT INFORMATION
  Report Type: Spontaneous
  Country: CN (occurrence: CN)
  Receive Date: 20241024
  Receipt Date: 20241024
  Transmission Date: 20250115
  Serious: Yes (Life-Threatening, Other)
  Sender: PFIZER
  Company Number: CN-PFIZER INC-PV202400137144

PATIENT
  Age: 23 Year
  Sex: Male
  Weight: 60 kg

DRUGS (2)
  1. METHYLPREDNISOLONE SODIUM SUCCINATE [Suspect]
     Active Substance: METHYLPREDNISOLONE SODIUM SUCCINATE
     Indication: Dermatitis allergic
     Dosage: 40 MG, 1X/DAY
     Route: 041
     Dates: start: 20240915, end: 20240915
  2. SODIUM CHLORIDE [Concomitant]
     Active Substance: SODIUM CHLORIDE
     Indication: Dermatitis allergic
     Dosage: 100 ML
     Route: 041
     Dates: start: 20240915, end: 20240915

REACTIONS (6)
  - Dizziness [Recovering/Resolving]
  - Muscular weakness [Recovering/Resolving]
  - Hyperhidrosis [Recovering/Resolving]
  - Pallor [Recovering/Resolving]
  - Respiratory rate increased [Recovering/Resolving]
  - Blood pressure abnormal [Recovering/Resolving]

NARRATIVE: CASE EVENT DATE: 20240915
